FAERS Safety Report 8533040-1 (Version None)
Quarter: 2012Q3

REPORT INFORMATION
  Report Type: 
  Country: None (occurrence: None)
  Receive Date: 20120724
  Receipt Date: 20120718
  Transmission Date: 20120928
  Serious: Yes (Death)
  Sender: FDA-Public Use
  Company Number: TN-SANOFI-AVENTIS-2012SA051193

PATIENT
  Age: 52 Year
  Sex: Female

DRUGS (8)
  1. ASPIRIN [Concomitant]
     Route: 048
     Dates: end: 20120713
  2. ISOSORBIDE DINITRATE [Concomitant]
     Route: 048
     Dates: end: 20120713
  3. AMLODIPINE BESYLATE [Concomitant]
     Route: 048
     Dates: end: 20120713
  4. PLAVIX [Suspect]
     Indication: STENT PLACEMENT
     Route: 048
     Dates: start: 20111205, end: 20120713
  5. LASIX [Concomitant]
     Route: 048
     Dates: end: 20120713
  6. DOPANORE [Concomitant]
     Route: 048
     Dates: end: 20120713
  7. INSULIN [Concomitant]
     Route: 058
     Dates: end: 20120713
  8. PLAVIX [Suspect]
     Route: 048
     Dates: start: 20111205, end: 20120713

REACTIONS (1)
  - CARDIAC ARREST [None]
